FAERS Safety Report 25507494 (Version 1)
Quarter: 2025Q3

REPORT INFORMATION
  Report Type: Spontaneous
  Country: KR (occurrence: KR)
  Receive Date: 20250703
  Receipt Date: 20250703
  Transmission Date: 20251021
  Serious: Yes (Hospitalization)
  Sender: Harrow Health
  Company Number: NVSC2025KR103449

PATIENT

DRUGS (9)
  1. VIGAMOX [Suspect]
     Active Substance: MOXIFLOXACIN HYDROCHLORIDE
     Dates: start: 20250508
  2. BEOVU [Suspect]
     Active Substance: BROLUCIZUMAB-DBLL
     Indication: Neovascular age-related macular degeneration
     Dates: start: 20250131, end: 20250131
  3. BEOVU [Suspect]
     Active Substance: BROLUCIZUMAB-DBLL
     Dates: start: 20250218, end: 20250218
  4. BEOVU [Suspect]
     Active Substance: BROLUCIZUMAB-DBLL
     Dates: start: 20250401, end: 20250401
  5. BEOVU [Suspect]
     Active Substance: BROLUCIZUMAB-DBLL
     Dates: start: 20250613, end: 20250613
  6. OFLOXACIN [Concomitant]
     Active Substance: OFLOXACIN
     Dates: start: 20250508
  7. BSS PLUS [Concomitant]
     Active Substance: CALCIUM CHLORIDE\DEXTROSE\MAGNESIUM CHLORIDE\OXIGLUTATIONE\POTASSIUM CHLORIDE\SODIUM BICARBONATE\SOD
  8. Fumelon [Concomitant]
     Dates: start: 20250509
  9. BROMFENAC SODIUM [Concomitant]
     Active Substance: BROMFENAC SODIUM
     Dates: start: 20250509

REACTIONS (2)
  - Retinal haemorrhage [Unknown]
  - Off label use [Unknown]
